FAERS Safety Report 5354677-7 (Version None)
Quarter: 2007Q2

REPORT INFORMATION
  Report Type: 
  Country: None (occurrence: None)
  Receive Date: 20070608
  Receipt Date: 20070524
  Transmission Date: 20071010
  Serious: Yes (Disabling, Other)
  Sender: FDA-Public Use
  Company Number: 100#03#2007-01933

PATIENT
  Age: 73 Year
  Sex: Female

DRUGS (7)
  1. CITALOPRAM HYDROBROMIDE [Suspect]
     Indication: DRUG USE FOR UNKNOWN INDICATION
     Dosage: 20MG ORAL
     Route: 048
     Dates: start: 20061017, end: 20070402
  2. ADCAL-D3 (LEKOVIT CA) (CALCIUM CARBONATE, COLECALCIFEROL, DESTAB CALCI [Concomitant]
  3. AMLODIPINE (AMLODIPINE) (AMLODIPINE) [Concomitant]
  4. BENDROFLUAZIDE (BENDROFLUMETHIAZIDE) (BENDROFLUAZIDE) [Concomitant]
  5. LEVOTHYROXINE (LEVOTHYROXINE) (THYROXINE) [Concomitant]
  6. OMEPRAZOLE [Concomitant]
  7. DOSULEPIN (DOSULEPIN) (DOTHIEPIN) [Concomitant]

REACTIONS (2)
  - EXTRAPYRAMIDAL DISORDER [None]
  - PARKINSONISM [None]
